FAERS Safety Report 10242053 (Version 2)
Quarter: 2014Q2

REPORT INFORMATION
  Report Type: Spontaneous
  Country: GB (occurrence: GB)
  Receive Date: 20140617
  Receipt Date: 20140617
  Transmission Date: 20141212
  Serious: Yes (Hospitalization)
  Sender: FDA-Public Use
  Company Number: ALCN2005GB002072

PATIENT
  Age: 81 Year
  Sex: Female

DRUGS (9)
  1. TIMOLOL [Suspect]
     Indication: HYPERTENSION
     Dosage: OPHT
     Dates: end: 20050721
  2. DILTIAZEM [Suspect]
     Indication: HYPERTENSION
     Dosage: 300 MG QD PO
     Route: 048
     Dates: end: 20050721
  3. CANDESARTAN [Concomitant]
     Indication: BLOOD PRESSURE INCREASED
     Dosage: 10 MG QD PO
  4. SIMVASTATIN [Concomitant]
     Indication: HYPERCHOLESTEROLAEMIA
     Dosage: 20 MG QD PO
  5. ASPIRIN [Concomitant]
     Indication: BLOOD PRESSURE INCREASED
     Dosage: 75 MG QD PO
  6. ISOSORBIDE MONONITRATE [Concomitant]
     Indication: BLOOD PRESSURE INCREASED
     Dosage: 60 MG QD PO
  7. AZOPT [Concomitant]
     Indication: GLAUCOMA
     Dosage: OPHT
  8. CYCLOPENTOLATE HYDROCHLORIDE 1% [Concomitant]
     Indication: GLAUCOMA
     Dosage: OPHT
  9. TRAVATAN [Concomitant]
     Indication: GLAUCOMA
     Dosage: OPHT

REACTIONS (1)
  - Bradycardia [Recovered/Resolved]
